FAERS Safety Report 17076986 (Version 1)
Quarter: 2019Q4

REPORT INFORMATION
  Report Type: Spontaneous
  Country: US (occurrence: US)
  Receive Date: 20191126
  Receipt Date: 20191126
  Transmission Date: 20200122
  Serious: Yes (Death, Other)
  Sender: FDA-Public Use
  Company Number: US-BAUSCH-BL-2019-006479

PATIENT
  Age: 75 Year
  Sex: Female

DRUGS (2)
  1. XIFAXAN [Suspect]
     Active Substance: RIFAXIMIN
     Route: 048
     Dates: start: 2019
  2. XIFAXAN [Suspect]
     Active Substance: RIFAXIMIN
     Indication: HEPATIC ENCEPHALOPATHY
     Dosage: TAKING XIFAXAN FOR OVER 3 WEEKS
     Route: 048
     Dates: start: 201901, end: 201902

REACTIONS (6)
  - Liver disorder [Fatal]
  - Renal failure [Unknown]
  - Therapy cessation [Unknown]
  - Ill-defined disorder [Fatal]
  - Diabetes mellitus [Unknown]
  - Inability to afford medication [Unknown]

NARRATIVE: CASE EVENT DATE: 20190221
